FAERS Safety Report 12797578 (Version 1)
Quarter: 2016Q3

REPORT INFORMATION
  Report Type: Spontaneous
  Country: DE (occurrence: DE)
  Receive Date: 20160930
  Receipt Date: 20160930
  Transmission Date: 20161109
  Serious: Yes (Other)
  Sender: FDA-Public Use
  Company Number: DE-TEVA-695100GER

PATIENT
  Age: 26 Year
  Sex: Male

DRUGS (1)
  1. COPAXONE [Suspect]
     Active Substance: GLATIRAMER ACETATE
     Dates: start: 20160401

REACTIONS (2)
  - Arthropod bite [Unknown]
  - Lyme disease [Recovered/Resolved]

NARRATIVE: CASE EVENT DATE: 201608
